FAERS Safety Report 18585630 (Version 1)
Quarter: 2020Q4

REPORT INFORMATION
  Report Type: Spontaneous
  Country: US (occurrence: US)
  Receive Date: 20201205
  Receipt Date: 20201205
  Transmission Date: 20210114
  Serious: No
  Sender: FDA-Public Use
  Company Number: None

PATIENT
  Age: 76 Year
  Sex: Female
  Weight: 49.95 kg

DRUGS (2)
  1. XYLOCAINE [Suspect]
     Active Substance: LIDOCAINE HYDROCHLORIDE
  2. PROPOFOL. [Suspect]
     Active Substance: PROPOFOL
     Dosage: ?          OTHER FREQUENCY:FOR PROCEDURE ONLY;?
     Route: 042

REACTIONS (3)
  - Pruritus [None]
  - Rash [None]
  - Paraesthesia [None]

NARRATIVE: CASE EVENT DATE: 20200918
